FAERS Safety Report 17574938 (Version 2)
Quarter: 2020Q1

REPORT INFORMATION
  Report Type: Spontaneous
  Country: US (occurrence: US)
  Receive Date: 20200324
  Receipt Date: 20200331
  Transmission Date: 20200409
  Serious: No
  Sender: FDA-Public Use
  Company Number: US-AMGEN-USASP2020046829

PATIENT
  Sex: Female

DRUGS (3)
  1. STRONTIUM [Concomitant]
     Active Substance: STRONTIUM
  2. ALGAE CALCIUM [Concomitant]
  3. PROLIA [Suspect]
     Active Substance: DENOSUMAB
     Indication: PRODUCT USED FOR UNKNOWN INDICATION
     Dosage: UNK
     Route: 065

REACTIONS (9)
  - Mobility decreased [Unknown]
  - Constipation [Unknown]
  - Gastrooesophageal reflux disease [Unknown]
  - Adverse drug reaction [Unknown]
  - Gait disturbance [Unknown]
  - Drug withdrawal syndrome [Unknown]
  - Breast tenderness [Unknown]
  - Chest pain [Recovered/Resolved]
  - Noninfective gingivitis [Unknown]
